FAERS Safety Report 17918659 (Version 2)
Quarter: 2020Q3

REPORT INFORMATION
  Report Type: Report from Study
  Country: US (occurrence: US)
  Receive Date: 20200619
  Receipt Date: 20200724
  Transmission Date: 20201103
  Serious: Yes (Other)
  Sender: FDA-Public Use
  Company Number: US-ASTELLAS-2020US009662

PATIENT
  Sex: Male

DRUGS (1)
  1. ASP2215 [Suspect]
     Active Substance: GILTERITINIB
     Indication: ACUTE MYELOID LEUKAEMIA
     Route: 048
     Dates: start: 202002, end: 20200720

REACTIONS (4)
  - Acute myeloid leukaemia [Unknown]
  - Fatigue [Unknown]
  - Dyspnoea exertional [Unknown]
  - Pulmonary thrombosis [Unknown]
